FAERS Safety Report 16250882 (Version 1)
Quarter: 2019Q2

REPORT INFORMATION
  Report Type: Spontaneous
  Country: US (occurrence: US)
  Receive Date: 20190426
  Receipt Date: 20190426
  Transmission Date: 20190711
  Serious: Yes (Hospitalization)
  Sender: FDA-Public Use
  Company Number: None

PATIENT
  Age: 14 Year
  Sex: Female
  Weight: 63 kg

DRUGS (5)
  1. SERTRALINE [Suspect]
     Active Substance: SERTRALINE HYDROCHLORIDE
  2. SERTRALINE 50 MG [Suspect]
     Active Substance: SERTRALINE HYDROCHLORIDE
  3. FLUOXETINE [Suspect]
     Active Substance: FLUOXETINE HYDROCHLORIDE
  4. ATENOLOL. [Suspect]
     Active Substance: ATENOLOL
  5. AMITRIPTYLINE 10 MG [Suspect]
     Active Substance: AMITRIPTYLINE

REACTIONS (1)
  - Intentional overdose [None]

NARRATIVE: CASE EVENT DATE: 20190201
